FAERS Safety Report 10291414 (Version 2)
Quarter: 2014Q3

REPORT INFORMATION
  Report Type: Spontaneous
  Country: FR (occurrence: None)
  Receive Date: 20140708
  Receipt Date: 20140825
  Transmission Date: 20150326
  Serious: Yes (Other)
  Sender: FDA-Public Use
  Company Number: NGX_02485_2014

PATIENT
  Age: 60 Year
  Sex: Female
  Weight: 60 kg

DRUGS (4)
  1. GABAPENTIN. [Concomitant]
     Active Substance: GABAPENTIN
  2. QUTENZA [Suspect]
     Active Substance: CAPSAICIN
     Indication: NEUROPATHY PERIPHERAL
     Dosage: ( CUTANEOUS PATCH,  DF) TRANSDERMAL)
     Route: 062
     Dates: start: 20140610, end: 20140610
  3. OXYCONTIN [Concomitant]
     Active Substance: OXYCODONE HYDROCHLORIDE
  4. OXYCONORM-OXYCODONE [Concomitant]

REACTIONS (4)
  - Application site inflammation [None]
  - Nasopharyngitis [None]
  - Panniculitis [None]
  - Drug ineffective [None]

NARRATIVE: CASE EVENT DATE: 20140610
